FAERS Safety Report 4535165-4 (Version None)
Quarter: 2004Q4

REPORT INFORMATION
  Report Type: 
  Country: None (occurrence: None)
  Receive Date: 20041222
  Receipt Date: 20040106
  Transmission Date: 20050328
  Serious: No
  Sender: FDA-Public Use
  Company Number: US-BRISTOL-MYERS SQUIBB COMPANY-12471504

PATIENT
  Sex: Male

DRUGS (2)
  1. DOVONEX [Suspect]
     Indication: PSORIASIS
     Route: 061
     Dates: start: 20040101, end: 20040101
  2. METHOTREXATE [Concomitant]
     Dosage: TAKEN ABOUT 2 WEEKS BEFORE STARTING DOVONEX.
     Dates: end: 20031201

REACTIONS (1)
  - DERMATITIS [None]
